FAERS Safety Report 18197981 (Version 1)
Quarter: 2020Q3

REPORT INFORMATION
  Report Type: Spontaneous
  Country: AT (occurrence: AT)
  Receive Date: 20200826
  Receipt Date: 20200826
  Transmission Date: 20201104
  Serious: Yes (Other)
  Sender: FDA-Public Use
  Company Number: NVSC2020AT233169

PATIENT

DRUGS (2)
  1. ROPEGINTERFERON ALFA?2B. [Suspect]
     Active Substance: ROPEGINTERFERON ALFA-2B
     Indication: CHRONIC MYELOID LEUKAEMIA
     Dosage: 50 UG, Q2W (RANGE 45?92 UG)
     Route: 058
  2. IMATINIB. [Suspect]
     Active Substance: IMATINIB MESYLATE
     Indication: CHRONIC MYELOID LEUKAEMIA
     Dosage: 800 MG (RANGE 400?800 MG)
     Route: 065

REACTIONS (1)
  - Panic attack [Unknown]
